FAERS Safety Report 6467979-8 (Version None)
Quarter: 2009Q4

REPORT INFORMATION
  Report Type: 
  Country: None (occurrence: None)
  Receive Date: 20091202
  Receipt Date: 20081120
  Transmission Date: 20100525
  Serious: No
  Sender: FDA-Public Use
  Company Number: US-AMGEN-KDL320012

PATIENT
  Sex: Female
  Weight: 83.5 kg

DRUGS (4)
  1. ENBREL [Suspect]
     Indication: PSORIATIC ARTHROPATHY
  2. SULFASALAZINE [Concomitant]
     Route: 048
  3. CELECOXIB [Concomitant]
     Route: 048
  4. REMICADE [Concomitant]

REACTIONS (1)
  - DRUG INEFFECTIVE [None]
